FAERS Safety Report 6444699-7 (Version None)
Quarter: 2009Q4

REPORT INFORMATION
  Report Type: 
  Country: None (occurrence: None)
  Receive Date: 20091118
  Receipt Date: 20091112
  Transmission Date: 20100525
  Serious: Yes (Death, Other)
  Sender: FDA-Public Use
  Company Number: A0795293A

PATIENT
  Age: 75 Year
  Sex: Female

DRUGS (3)
  1. PROMACTA [Suspect]
     Dosage: 75MG PER DAY
     Route: 048
     Dates: start: 20090203, end: 20090528
  2. CYCLOSPORINE [Concomitant]
     Dates: start: 20080618
  3. STEROIDS [Concomitant]

REACTIONS (2)
  - DEATH [None]
  - DRUG INEFFECTIVE [None]
